FAERS Safety Report 7252681-5 (Version None)
Quarter: 2011Q1

REPORT INFORMATION
  Report Type: 
  Country: None (occurrence: None)
  Receive Date: 20110129
  Receipt Date: 20100330
  Transmission Date: 20110831
  Serious: No
  Sender: FDA-Public Use
  Company Number: US-ABBOTT-10P-163-0636451-00

PATIENT
  Sex: Female

DRUGS (1)
  1. HUMIRA [Suspect]
     Indication: PSORIASIS
     Dosage: 80MG 1ST TIME THEN 40MG 2 WKS LATER
     Dates: start: 20100303, end: 20100317

REACTIONS (2)
  - URTICARIA [None]
  - RASH PRURITIC [None]
